FAERS Safety Report 24248227 (Version 4)
Quarter: 2025Q4

REPORT INFORMATION
  Report Type: Spontaneous
  Country: CA (occurrence: CA)
  Receive Date: 20240826
  Receipt Date: 20251222
  Transmission Date: 20260117
  Serious: Yes (Death, Hospitalization)
  Sender: MYLAN
  Company Number: CA-MYLANLABS-2024M1078040

PATIENT
  Sex: Male

DRUGS (64)
  1. REVATIO [Suspect]
     Active Substance: SILDENAFIL CITRATE
     Indication: Fontan procedure
     Dosage: 40 MILLIGRAM, TID (THREE TIMES A DAY)
     Route: 061
  2. REVATIO [Suspect]
     Active Substance: SILDENAFIL CITRATE
     Dosage: 40 MILLIGRAM, TID (THREE TIMES A DAY)
     Route: 048
  3. REVATIO [Suspect]
     Active Substance: SILDENAFIL CITRATE
     Dosage: 40 MILLIGRAM, TID (THREE TIMES A DAY)
     Route: 048
  4. REVATIO [Suspect]
     Active Substance: SILDENAFIL CITRATE
     Dosage: 40 MILLIGRAM, TID (THREE TIMES A DAY)
     Route: 061
  5. REVATIO [Suspect]
     Active Substance: SILDENAFIL CITRATE
     Indication: Product used for unknown indication
     Dosage: 40 MILLIGRAM, TID (THREE TIMES A DAY)
     Route: 061
     Dates: start: 20240822
  6. REVATIO [Suspect]
     Active Substance: SILDENAFIL CITRATE
     Dosage: 40 MILLIGRAM, TID (THREE TIMES A DAY)
     Route: 048
     Dates: start: 20240822
  7. REVATIO [Suspect]
     Active Substance: SILDENAFIL CITRATE
     Dosage: 40 MILLIGRAM, TID (THREE TIMES A DAY)
     Route: 048
     Dates: start: 20240822
  8. REVATIO [Suspect]
     Active Substance: SILDENAFIL CITRATE
     Dosage: 40 MILLIGRAM, TID (THREE TIMES A DAY)
     Route: 061
     Dates: start: 20240822
  9. TINZAPARIN [Concomitant]
     Active Substance: TINZAPARIN
     Dosage: UNK
  10. TINZAPARIN [Concomitant]
     Active Substance: TINZAPARIN
     Dosage: UNK
     Route: 065
  11. TINZAPARIN [Concomitant]
     Active Substance: TINZAPARIN
     Dosage: UNK
     Route: 065
  12. TINZAPARIN [Concomitant]
     Active Substance: TINZAPARIN
     Dosage: UNK
  13. NYSTATIN [Concomitant]
     Active Substance: NYSTATIN
     Dosage: UNK
  14. NYSTATIN [Concomitant]
     Active Substance: NYSTATIN
     Dosage: UNK
     Route: 065
  15. NYSTATIN [Concomitant]
     Active Substance: NYSTATIN
     Dosage: UNK
     Route: 065
  16. NYSTATIN [Concomitant]
     Active Substance: NYSTATIN
     Dosage: UNK
  17. FUROSEMIDE [Concomitant]
     Active Substance: FUROSEMIDE
     Dosage: UNK
  18. FUROSEMIDE [Concomitant]
     Active Substance: FUROSEMIDE
     Dosage: UNK
     Route: 065
  19. FUROSEMIDE [Concomitant]
     Active Substance: FUROSEMIDE
     Dosage: UNK
     Route: 065
  20. FUROSEMIDE [Concomitant]
     Active Substance: FUROSEMIDE
     Dosage: UNK
  21. DAPAGLIFLOZIN [Concomitant]
     Active Substance: DAPAGLIFLOZIN
     Dosage: UNK
  22. DAPAGLIFLOZIN [Concomitant]
     Active Substance: DAPAGLIFLOZIN
     Dosage: UNK
     Route: 065
  23. DAPAGLIFLOZIN [Concomitant]
     Active Substance: DAPAGLIFLOZIN
     Dosage: UNK
     Route: 065
  24. DAPAGLIFLOZIN [Concomitant]
     Active Substance: DAPAGLIFLOZIN
     Dosage: UNK
  25. HYDROCORTISONE [Concomitant]
     Active Substance: HYDROCORTISONE
     Dosage: UNK
  26. HYDROCORTISONE [Concomitant]
     Active Substance: HYDROCORTISONE
     Dosage: UNK
     Route: 065
  27. HYDROCORTISONE [Concomitant]
     Active Substance: HYDROCORTISONE
     Dosage: UNK
     Route: 065
  28. HYDROCORTISONE [Concomitant]
     Active Substance: HYDROCORTISONE
     Dosage: UNK
  29. LISINOPRIL [Concomitant]
     Active Substance: LISINOPRIL
     Dosage: UNK
  30. LISINOPRIL [Concomitant]
     Active Substance: LISINOPRIL
     Dosage: UNK
     Route: 065
  31. LISINOPRIL [Concomitant]
     Active Substance: LISINOPRIL
     Dosage: UNK
     Route: 065
  32. LISINOPRIL [Concomitant]
     Active Substance: LISINOPRIL
     Dosage: UNK
  33. ALBUTEROL [Concomitant]
     Active Substance: ALBUTEROL
     Dosage: UNK
  34. ALBUTEROL [Concomitant]
     Active Substance: ALBUTEROL
     Dosage: UNK
     Route: 065
  35. ALBUTEROL [Concomitant]
     Active Substance: ALBUTEROL
     Dosage: UNK
     Route: 065
  36. ALBUTEROL [Concomitant]
     Active Substance: ALBUTEROL
     Dosage: UNK
  37. FLOVENT [Concomitant]
     Active Substance: FLUTICASONE PROPIONATE
     Dosage: UNK
  38. FLOVENT [Concomitant]
     Active Substance: FLUTICASONE PROPIONATE
     Dosage: UNK
     Route: 065
  39. FLOVENT [Concomitant]
     Active Substance: FLUTICASONE PROPIONATE
     Dosage: UNK
     Route: 065
  40. FLOVENT [Concomitant]
     Active Substance: FLUTICASONE PROPIONATE
     Dosage: UNK
  41. BUDESONIDE [Concomitant]
     Active Substance: BUDESONIDE
     Dosage: UNK
  42. BUDESONIDE [Concomitant]
     Active Substance: BUDESONIDE
     Dosage: UNK
     Route: 065
  43. BUDESONIDE [Concomitant]
     Active Substance: BUDESONIDE
     Dosage: UNK
     Route: 065
  44. BUDESONIDE [Concomitant]
     Active Substance: BUDESONIDE
     Dosage: UNK
  45. SPIRONOLACTONE [Concomitant]
     Active Substance: SPIRONOLACTONE
     Dosage: UNK
  46. SPIRONOLACTONE [Concomitant]
     Active Substance: SPIRONOLACTONE
     Dosage: UNK
     Route: 065
  47. SPIRONOLACTONE [Concomitant]
     Active Substance: SPIRONOLACTONE
     Dosage: UNK
     Route: 065
  48. SPIRONOLACTONE [Concomitant]
     Active Substance: SPIRONOLACTONE
     Dosage: UNK
  49. CALCIUM CARBONATE [Concomitant]
     Active Substance: CALCIUM CARBONATE
     Dosage: UNK
  50. CALCIUM CARBONATE [Concomitant]
     Active Substance: CALCIUM CARBONATE
     Dosage: UNK
     Route: 065
  51. CALCIUM CARBONATE [Concomitant]
     Active Substance: CALCIUM CARBONATE
     Dosage: UNK
     Route: 065
  52. CALCIUM CARBONATE [Concomitant]
     Active Substance: CALCIUM CARBONATE
     Dosage: UNK
  53. OMEPRAZOLE [Concomitant]
     Active Substance: OMEPRAZOLE
     Dosage: UNK
  54. OMEPRAZOLE [Concomitant]
     Active Substance: OMEPRAZOLE
     Dosage: UNK
     Route: 065
  55. OMEPRAZOLE [Concomitant]
     Active Substance: OMEPRAZOLE
     Dosage: UNK
     Route: 065
  56. OMEPRAZOLE [Concomitant]
     Active Substance: OMEPRAZOLE
     Dosage: UNK
  57. VITAMIN D [Concomitant]
     Active Substance: VITAMIN D NOS
     Dosage: UNK
  58. VITAMIN D [Concomitant]
     Active Substance: VITAMIN D NOS
     Dosage: UNK
     Route: 065
  59. VITAMIN D [Concomitant]
     Active Substance: VITAMIN D NOS
     Dosage: UNK
     Route: 065
  60. VITAMIN D [Concomitant]
     Active Substance: VITAMIN D NOS
     Dosage: UNK
  61. CARVEDILOL [Concomitant]
     Active Substance: CARVEDILOL
     Dosage: UNK
  62. CARVEDILOL [Concomitant]
     Active Substance: CARVEDILOL
     Dosage: UNK
     Route: 065
  63. CARVEDILOL [Concomitant]
     Active Substance: CARVEDILOL
     Dosage: UNK
     Route: 065
  64. CARVEDILOL [Concomitant]
     Active Substance: CARVEDILOL
     Dosage: UNK

REACTIONS (5)
  - Death [Fatal]
  - Fontan procedure [Fatal]
  - Stress fracture [Unknown]
  - Hospitalisation [Unknown]
  - Off label use [Unknown]
